FAERS Safety Report 13875969 (Version 2)
Quarter: 2018Q2

REPORT INFORMATION
  Report Type: Spontaneous
  Country: GB (occurrence: GB)
  Receive Date: 20170817
  Receipt Date: 20180503
  Transmission Date: 20180711
  Serious: Yes (Death, Life-Threatening, Other)
  Sender: FDA-Public Use
  Company Number: GB-BRISTOL-MYERS SQUIBB COMPANY-BMS-2017-072367

PATIENT
  Age: 84 Year
  Sex: Male
  Weight: 73 kg

DRUGS (3)
  1. ELIQUIS [Suspect]
     Active Substance: APIXABAN
     Indication: PERIPHERAL VASCULAR DISORDER
     Dosage: 2.5 MG, BID
     Route: 048
     Dates: start: 20170719, end: 20170731
  2. ATORVASTATIN [Concomitant]
     Active Substance: ATORVASTATIN
     Indication: PRODUCT USED FOR UNKNOWN INDICATION
     Dosage: UNK
     Route: 065
  3. RAMIPRIL. [Concomitant]
     Active Substance: RAMIPRIL
     Indication: PRODUCT USED FOR UNKNOWN INDICATION
     Dosage: UNK
     Route: 065

REACTIONS (7)
  - Renal vessel disorder [Fatal]
  - Product use in unapproved indication [Unknown]
  - Procedural haemorrhage [Not Recovered/Not Resolved]
  - Melaena [Not Recovered/Not Resolved]
  - Upper gastrointestinal haemorrhage [Recovered/Resolved]
  - Duodenal ulcer [Not Recovered/Not Resolved]
  - Hypovolaemia [Not Recovered/Not Resolved]

NARRATIVE: CASE EVENT DATE: 20170730
